FAERS Safety Report 4581669-8 (Version None)
Quarter: 2005Q1

REPORT INFORMATION
  Report Type: 
  Country: None (occurrence: None)
  Receive Date: 20050127
  Receipt Date: 20041115
  Transmission Date: 20050727
  Serious: No
  Sender: FDA-Public Use
  Company Number: US_0411108395

PATIENT
  Age: 12 Year
  Sex: Male
  Weight: 24 kg

DRUGS (3)
  1. STRATTERA [Suspect]
     Indication: ATTENTION DEFICIT/HYPERACTIVITY DISORDER
     Dosage: 60 MG DAY
     Dates: start: 20041111
  2. RITALIN [Concomitant]
  3. EASPRIN (ACETYLSALICYLIC ACID) [Concomitant]

REACTIONS (3)
  - PRESCRIBED OVERDOSE [None]
  - RETCHING [None]
  - VOMITING [None]
